FAERS Safety Report 17731613 (Version 2)
Quarter: 2020Q2

REPORT INFORMATION
  Report Type: Spontaneous
  Country: GB (occurrence: GB)
  Receive Date: 20200501
  Receipt Date: 20200525
  Transmission Date: 20200714
  Serious: Yes (Other)
  Sender: FDA-Public Use
  Company Number: GB-ETHYPHARM-202000711

PATIENT
  Age: 40 Year
  Sex: Female

DRUGS (2)
  1. ESPRANOR [Suspect]
     Active Substance: BUPRENORPHINE HYDROCHLORIDE
     Indication: DRUG DEPENDENCE
     Dosage: 6MG AND 10MG
     Route: 048
     Dates: start: 20200410, end: 20200413
  2. MIRTAZAPINE. [Concomitant]
     Active Substance: MIRTAZAPINE
     Indication: PRODUCT USED FOR UNKNOWN INDICATION
     Route: 065

REACTIONS (4)
  - Wheezing [Recovered/Resolved with Sequelae]
  - Headache [Recovered/Resolved with Sequelae]
  - Chest discomfort [Recovered/Resolved with Sequelae]
  - Oral mucosal blistering [Recovered/Resolved with Sequelae]

NARRATIVE: CASE EVENT DATE: 20200410
